FAERS Safety Report 17841241 (Version 4)
Quarter: 2020Q2

REPORT INFORMATION
  Report Type: Report from Study
  Country: AU (occurrence: AU)
  Receive Date: 20200529
  Receipt Date: 20200615
  Transmission Date: 20200714
  Serious: Yes (Other)
  Sender: FDA-Public Use
  Company Number: AU-ROCHE-2572467

PATIENT
  Sex: Male

DRUGS (1)
  1. VISMODEGIB. [Suspect]
     Active Substance: VISMODEGIB
     Indication: MEDULLOBLASTOMA
     Dosage: CEASED
     Route: 048
     Dates: start: 20191116, end: 20200306

REACTIONS (3)
  - Cytopenia [Unknown]
  - Bone marrow toxicity [Unknown]
  - Toxicity to various agents [Unknown]
